FAERS Safety Report 24172905 (Version 1)
Quarter: 2024Q3

REPORT INFORMATION
  Report Type: Spontaneous
  Country: CA (occurrence: CA)
  Receive Date: 20240805
  Receipt Date: 20240805
  Transmission Date: 20241017
  Serious: Yes (Hospitalization, Other)
  Sender: AUROBINDO
  Company Number: CA-AUROBINDO-AUR-APL-2024-038597

PATIENT
  Age: 2 Year
  Sex: Female
  Weight: 13 kg

DRUGS (1)
  1. AMOXICILLIN [Suspect]
     Active Substance: AMOXICILLIN
     Indication: Neoplasm
     Dosage: UNK, TWO TIMES A DAY
     Route: 048

REACTIONS (3)
  - Angioedema [Unknown]
  - Rash erythematous [Unknown]
  - General physical health deterioration [Unknown]
